FAERS Safety Report 8307036-9 (Version None)
Quarter: 2012Q2

REPORT INFORMATION
  Report Type: 
  Country: None (occurrence: None)
  Receive Date: 20120424
  Receipt Date: 20120417
  Transmission Date: 20120825
  Serious: No
  Sender: FDA-Public Use
  Company Number: PHHY2012JP034307

PATIENT
  Age: 69 Year
  Sex: Female

DRUGS (3)
  1. ZOLPIDEM [Interacting]
     Route: 048
  2. TASIGNA [Suspect]
     Route: 048
     Dates: start: 20120323
  3. CONIEL [Interacting]
     Route: 048

REACTIONS (3)
  - DRUG INTERACTION [None]
  - BLOOD PRESSURE DECREASED [None]
  - BLOOD PRESSURE INCREASED [None]
